FAERS Safety Report 4986352-2 (Version None)
Quarter: 2006Q2

REPORT INFORMATION
  Report Type: 
  Country: None (occurrence: None)
  Receive Date: 20060428
  Receipt Date: 20060426
  Transmission Date: 20061013
  Serious: Yes (Hospitalization, Other)
  Sender: FDA-Public Use
  Company Number: AR-GLAXOSMITHKLINE-A0603440A

PATIENT
  Age: 47 Year
  Sex: Male

DRUGS (3)
  1. LAMICTAL [Suspect]
     Dosage: 5MG PER DAY
     Route: 048
     Dates: start: 20060116, end: 20060215
  2. ESCITALOPRAM OXALATE [Concomitant]
  3. CLONAZEPAM [Concomitant]

REACTIONS (6)
  - CONJUNCTIVITIS [None]
  - LYMPH NODE PAIN [None]
  - PURPURA [None]
  - PYREXIA [None]
  - RASH MACULAR [None]
  - STEVENS-JOHNSON SYNDROME [None]
